FAERS Safety Report 7331148-X (Version None)
Quarter: 2011Q1

REPORT INFORMATION
  Report Type: 
  Country: None (occurrence: None)
  Receive Date: 20110304
  Receipt Date: 20110223
  Transmission Date: 20110831
  Serious: Yes (Other)
  Sender: FDA-Public Use
  Company Number: CZ-JNJFOC-20110208539

PATIENT
  Sex: Female

DRUGS (1)
  1. REMICADE [Suspect]
     Indication: ANKYLOSING SPONDYLITIS
     Route: 042

REACTIONS (5)
  - CONJUNCTIVAL HYPERAEMIA [None]
  - FACE OEDEMA [None]
  - INFUSION RELATED REACTION [None]
  - BLOOD PRESSURE DECREASED [None]
  - DYSPNOEA [None]
